FAERS Safety Report 10012167 (Version 1)
Quarter: 2014Q1

REPORT INFORMATION
  Report Type: Spontaneous
  Country: IT (occurrence: IT)
  Receive Date: 20140314
  Receipt Date: 20140314
  Transmission Date: 20141002
  Serious: No
  Sender: FDA-Public Use
  Company Number: IT-GLAXOSMITHKLINE-B0629328A

PATIENT
  Age: 83 Year
  Sex: Female

DRUGS (8)
  1. AUGMENTIN (ORAL) [Suspect]
     Indication: BRONCHITIS
     Dosage: 2G PER DAY
     Route: 048
     Dates: start: 20090105, end: 20090106
  2. TAREG [Concomitant]
     Dosage: 80MG PER DAY
     Route: 048
  3. LOBIVON [Concomitant]
     Dosage: 250MCG PER DAY
     Route: 048
  4. LANSOX [Concomitant]
     Dosage: 30MG PER DAY
     Route: 048
  5. RIVOTRIL [Concomitant]
     Route: 048
  6. KEPPRA [Concomitant]
     Dosage: 1.5G PER DAY
     Route: 048
  7. FLUIFORT [Concomitant]
     Dosage: 2.7G PER DAY
     Route: 048
  8. CLEXANE [Concomitant]
     Dosage: 4000IU PER DAY
     Route: 058

REACTIONS (2)
  - Rash maculo-papular [Unknown]
  - Formication [Unknown]
